FAERS Safety Report 9015484 (Version 1)
Quarter: 2013Q1

REPORT INFORMATION
  Report Type: Spontaneous
  Country: US (occurrence: None)
  Receive Date: 20130103
  Receipt Date: 20130103
  Transmission Date: 20140127
  Serious: Yes (Other)
  Sender: FDA-Public Use
  Company Number: AUR-APL-2012-05601

PATIENT
  Age: 24 Year
  Sex: Female

DRUGS (2)
  1. PAROXETINE (PAROXETINE) [Suspect]
     Indication: PANIC DISORDER
     Dosage: 1 D
     Route: 048
  2. ZOLPIDEM (ZOLPIDEM) [Suspect]
     Indication: SLEEP DISORDER
     Dosage: 10MG AT BED TIME

REACTIONS (8)
  - Illusion [None]
  - Initial insomnia [None]
  - Middle insomnia [None]
  - Panic attack [None]
  - Anxiety [None]
  - Fear [None]
  - Drug interaction [None]
  - Toxicity to various agents [None]
